FAERS Safety Report 10769749 (Version 1)
Quarter: 2015Q1

REPORT INFORMATION
  Report Type: Spontaneous
  Country: CH (occurrence: CH)
  Receive Date: 20150206
  Receipt Date: 20150206
  Transmission Date: 20150721
  Serious: Yes (Disabling)
  Sender: FDA-Public Use
  Company Number: CH-TEVA-538022ISR

PATIENT
  Age: 21 Year
  Sex: Male

DRUGS (10)
  1. ASPARAGINASE [Concomitant]
     Active Substance: ASPARAGINASE
     Route: 041
     Dates: start: 20141030
  2. NEXIUM [Concomitant]
     Active Substance: ESOMEPRAZOLE MAGNESIUM
     Dosage: 20 MILLIGRAM DAILY;
     Route: 048
  3. VALTREX [Concomitant]
     Active Substance: VALACYCLOVIR HYDROCHLORIDE
     Dosage: 500 MILLIGRAM DAILY;
     Route: 048
  4. NEUPOGEN [Concomitant]
     Active Substance: FILGRASTIM
     Route: 058
  5. VINCRISTIN [Suspect]
     Active Substance: VINCRISTINE
     Indication: ACUTE LYMPHOCYTIC LEUKAEMIA
     Dosage: 2 MILLIGRAM DAILY;
     Route: 040
     Dates: start: 20141106, end: 20141106
  6. CYCLOPHOSPHAMID [Concomitant]
     Active Substance: CYCLOPHOSPHAMIDE
     Route: 041
     Dates: start: 20141030
  7. VINCRISTIN [Suspect]
     Active Substance: VINCRISTINE
     Dosage: 2 MILLIGRAM DAILY;
     Route: 040
     Dates: start: 20141014, end: 20141014
  8. DAUNORUBICIN [Concomitant]
     Active Substance: DAUNORUBICIN
     Route: 041
     Dates: start: 20141030
  9. UROMITEXAN [Concomitant]
     Active Substance: MESNA
     Route: 041
     Dates: start: 20141030
  10. VINCRISTIN [Suspect]
     Active Substance: VINCRISTINE
     Dosage: 2 MILLIGRAM DAILY;
     Route: 040
     Dates: start: 20141030, end: 20141030

REACTIONS (1)
  - Neuralgia [Not Recovered/Not Resolved]

NARRATIVE: CASE EVENT DATE: 20141222
